FAERS Safety Report 5851295-9 (Version None)
Quarter: 2008Q3

REPORT INFORMATION
  Report Type: 
  Country: None (occurrence: None)
  Receive Date: 20080731
  Receipt Date: 20080606
  Transmission Date: 20090109
  Serious: No
  Sender: FDA-Public Use
  Company Number: 2006PV006630

PATIENT
  Age: 66 Year
  Sex: Female
  Weight: 74.8 kg

DRUGS (7)
  1. EXENATIDE (EXENATIDE) PEN, DISPOSABLE [Suspect]
     Indication: TYPE 2 DIABETES MELLITUS
     Dosage: 5 UG, 2/D, SUBCUTANEOUS
     Route: 058
     Dates: start: 20051102, end: 20051213
  2. EXENATIDE (EXENATIDE) PEN, DISPOSABLE [Suspect]
     Indication: TYPE 2 DIABETES MELLITUS
     Dosage: 5 UG, 2/D, SUBCUTANEOUS
     Route: 058
     Dates: start: 20051214
  3. EXENATIDE(EXENATIDE) PEN,DISPOSABLE [Suspect]
  4. EXENATIDE(EXENATIDE) PEN,DISPOSABLE [Suspect]
  5. GLYNASE [Concomitant]
  6. AMARYL [Concomitant]
  7. METFORMIN HCL [Concomitant]

REACTIONS (1)
  - BLOOD GLUCOSE INCREASED [None]
